FAERS Safety Report 9795767 (Version 13)
Quarter: 2018Q1

REPORT INFORMATION
  Report Type: Report from Study
  Country: DK (occurrence: DK)
  Receive Date: 20140103
  Receipt Date: 20180208
  Transmission Date: 20180509
  Serious: Yes (Hospitalization)
  Sender: FDA-Public Use
  Company Number: DK-ROCHE-1324512

PATIENT
  Age: 78 Year
  Sex: Female
  Weight: 64.8 kg

DRUGS (9)
  1. DOXORUBICIN [Suspect]
     Active Substance: DOXORUBICIN
     Indication: DIFFUSE LARGE B-CELL LYMPHOMA
     Dosage: DATES OF MOST RECENT DOSES PRIOR TO SAES: 13/DEC/2013 (89MG), 24/JAN/2014 (87 MG)?MOST RECENT DOSE P
     Route: 042
     Dates: start: 20131213
  2. APOVIT D-VITAMIN [Concomitant]
     Indication: VITAMIN D DEFICIENCY
  3. CYCLOPHOSPHAMIDE. [Suspect]
     Active Substance: CYCLOPHOSPHAMIDE
     Indication: DIFFUSE LARGE B-CELL LYMPHOMA
     Dosage: DATES OF MOST RECENT DOSES PRIOR TO SAES: 13/DEC/2013 (1335MG),  24/JAN/2014 (1320MG)?MOST RECENT DO
     Route: 042
     Dates: start: 20131213
  4. PARACETAMOL [Concomitant]
     Active Substance: ACETAMINOPHEN
     Indication: PAIN
     Route: 065
     Dates: start: 20131204
  5. COD LIVER OIL [Concomitant]
     Active Substance: COD LIVER OIL
     Indication: VITAMIN SUPPLEMENTATION
  6. OBINUTUZUMAB. [Suspect]
     Active Substance: OBINUTUZUMAB
     Indication: DIFFUSE LARGE B-CELL LYMPHOMA
     Dosage: DATES OF MOST RECENT DOSES PRIOR TO SAES: 13/DEC/2013 (500 ML AT CONCENTRATION 2MG/ML), 24/JAN/2014
     Route: 042
     Dates: start: 20131213
  7. PREDNISONE. [Suspect]
     Active Substance: PREDNISONE
     Indication: DIFFUSE LARGE B-CELL LYMPHOMA
     Dosage: DATES OF MOST RECENT DOSES PRIOR TO SAES: 17/DEC/2013 (100MG),  24/JAN/2014 (100MG), 28/JAN/2014 (10
     Route: 048
     Dates: start: 20131213
  8. PANTOPRAZOL [Concomitant]
     Active Substance: PANTOPRAZOLE SODIUM
     Indication: PROPHYLAXIS
     Route: 065
     Dates: start: 20131211, end: 20140416
  9. VINCRISTINE [Suspect]
     Active Substance: VINCRISTINE
     Indication: DIFFUSE LARGE B-CELL LYMPHOMA
     Dosage: DATES OF MOST RECENT DOSES PRIOR TO SAES: 13/DEC/2013 (2MG), 24/JAN/2014 (2MG).?MOST RECENT DOSE PRI
     Route: 040
     Dates: start: 20131213

REACTIONS (3)
  - Fatigue [Recovered/Resolved]
  - Anaemia [Recovered/Resolved]
  - Malaise [Recovered/Resolved]

NARRATIVE: CASE EVENT DATE: 20131220
